FAERS Safety Report 4582366-5 (Version None)
Quarter: 2005Q1

REPORT INFORMATION
  Report Type: 
  Country: None (occurrence: None)
  Receive Date: 20050119
  Receipt Date: 20031208
  Transmission Date: 20050727
  Serious: Yes (Hospitalization, Other)
  Sender: FDA-Public Use
  Company Number: US-JNJFOC-20031102424

PATIENT
  Age: 71 Year
  Sex: Female
  Weight: 77.1115 kg

DRUGS (4)
  1. DOXIL (DOXORUBICIN HYDROCHLORIDE) LIPOSOME INJECTION [Suspect]
     Indication: MULTIPLE MYELOMA
     Dosage: 40 MG, 60 MG : 1 IN 4 WEEK, INTRAVENOUS
     Route: 042
     Dates: start: 20030203, end: 20030303
  2. DOXIL (DOXORUBICIN HYDROCHLORIDE) LIPOSOME INJECTION [Suspect]
     Indication: MULTIPLE MYELOMA
     Dosage: 40 MG, 60 MG : 1 IN 4 WEEK, INTRAVENOUS
     Route: 042
     Dates: start: 20030407, end: 20031013
  3. PROCRIT [Suspect]
  4. VINCRISTINE [Concomitant]

REACTIONS (2)
  - BONE MARROW DEPRESSION [None]
  - MALIGNANT NEOPLASM PROGRESSION [None]
